FAERS Safety Report 10360511 (Version 1)
Quarter: 2014Q3

REPORT INFORMATION
  Report Type: Report from Study
  Country: IT (occurrence: IT)
  Receive Date: 20140804
  Receipt Date: 20140804
  Transmission Date: 20150326
  Serious: Yes (Other)
  Sender: FDA-Public Use
  Company Number: IT-CELGENEUS-083-C5013-14074190

PATIENT
  Age: 79 Year
  Sex: Male
  Weight: 90 kg

DRUGS (7)
  1. CC-5013 [Suspect]
     Active Substance: LENALIDOMIDE
     Dosage: 25 MILLIGRAM
     Route: 048
     Dates: start: 20110125, end: 20110207
  2. PREDNISONE. [Suspect]
     Active Substance: PREDNISONE
     Dosage: 10 MILLIGRAM
     Route: 048
     Dates: start: 20110125, end: 20110214
  3. CC-5013 [Suspect]
     Active Substance: LENALIDOMIDE
     Indication: PROSTATE CANCER
     Dosage: 25 MILLIGRAM
     Route: 048
     Dates: start: 20101118, end: 20101201
  4. ZYTIGA [Concomitant]
     Active Substance: ABIRATERONE ACETATE
     Indication: PROSTATE CANCER
     Dosage: 1000 MILLIGRAM
     Route: 048
     Dates: start: 20130422, end: 20140611
  5. DOCETAXEL [Suspect]
     Active Substance: DOCETAXEL
     Indication: PROSTATE CANCER
     Dosage: 140 MILLIGRAM
     Route: 041
     Dates: start: 20101118, end: 20101118
  6. PREDNISONE. [Suspect]
     Active Substance: PREDNISONE
     Indication: PROSTATE CANCER
     Dosage: 10 MILLIGRAM
     Route: 048
     Dates: start: 20101118, end: 20101208
  7. DOCETAXEL [Suspect]
     Active Substance: DOCETAXEL
     Dosage: 140 MILLIGRAM
     Route: 041
     Dates: start: 20110125, end: 20110125

REACTIONS (1)
  - Kaposi^s sarcoma [Not Recovered/Not Resolved]

NARRATIVE: CASE EVENT DATE: 20140325
